FAERS Safety Report 9432849 (Version 1)
Quarter: 2013Q3

REPORT INFORMATION
  Report Type: Spontaneous
  Country: US (occurrence: US)
  Receive Date: 20130731
  Receipt Date: 20130731
  Transmission Date: 20140515
  Serious: Yes (Other)
  Sender: FDA-Public Use
  Company Number: US-SANOFI-AVENTIS-2013SA075739

PATIENT
  Age: 60 Year
  Sex: Male

DRUGS (8)
  1. FUROSEMIDE [Suspect]
     Route: 065
  2. PROMETHAZINE [Concomitant]
  3. CIPROFLOXACIN [Concomitant]
  4. OMEGA 3 [Concomitant]
  5. MULTIVITAMINS [Concomitant]
  6. STOOL SOFTENER [Concomitant]
  7. MELATONIN [Concomitant]
  8. ALL OTHER THERAPEUTIC PRODUCTS [Concomitant]

REACTIONS (3)
  - Hepatic failure [Unknown]
  - Laboratory test abnormal [Unknown]
  - Renal impairment [Unknown]
